FAERS Safety Report 7214927-9 (Version None)
Quarter: 2011Q1

REPORT INFORMATION
  Report Type: 
  Country: None (occurrence: None)
  Receive Date: 20110107
  Receipt Date: 20100518
  Transmission Date: 20110831
  Serious: No
  Sender: FDA-Public Use
  Company Number: A0860218A

PATIENT
  Age: 67 Year
  Sex: Female

DRUGS (4)
  1. LOVAZA [Suspect]
     Dosage: 2CAP TWICE PER DAY
     Route: 048
     Dates: start: 20100420
  2. SINGULAIR [Concomitant]
  3. HYZAAR [Concomitant]
  4. ACTOS [Concomitant]

REACTIONS (3)
  - FLATULENCE [None]
  - INFLUENZA LIKE ILLNESS [None]
  - ERUCTATION [None]
